FAERS Safety Report 5223211-4 (Version None)
Quarter: 2007Q1

REPORT INFORMATION
  Report Type: 
  Country: None (occurrence: None)
  Receive Date: 20061201
  Receipt Date: 20060705
  Transmission Date: 20070707
  Serious: No
  Sender: FDA-Public Use
  Company Number: 2006PV007217

PATIENT
  Age: 71 Year
  Sex: Male
  Weight: 77.1115 kg

DRUGS (14)
  1. BYETTA [Suspect]
     Indication: DIABETES MELLITUS NON-INSULIN-DEPENDENT
     Dosage: SEE IMAGE
     Route: 058
     Dates: start: 20060404, end: 20060401
  2. BYETTA [Suspect]
     Indication: DIABETES MELLITUS NON-INSULIN-DEPENDENT
     Dosage: SEE IMAGE
     Route: 058
     Dates: start: 20051231, end: 20060403
  3. BYETTA [Suspect]
     Indication: DIABETES MELLITUS NON-INSULIN-DEPENDENT
     Dosage: SEE IMAGE
     Route: 058
     Dates: start: 20060401
  4. BYETTA [Suspect]
  5. BYETTA [Suspect]
  6. BYETTA [Suspect]
  7. GLUCOPHAGE [Concomitant]
  8. GLUCOTROL XL [Concomitant]
  9. NORVASC [Concomitant]
  10. CRESTOR [Concomitant]
  11. LAMISIL [Concomitant]
  12. ASPIRIN [Concomitant]
  13. CLONAZEPAM [Concomitant]
  14. GLUCOTROL [Concomitant]

REACTIONS (11)
  - BLOOD GLUCOSE ABNORMAL [None]
  - BLOOD GLUCOSE DECREASED [None]
  - DIZZINESS [None]
  - FAECES HARD [None]
  - FAT REDISTRIBUTION [None]
  - INJECTION SITE BRUISING [None]
  - INJECTION SITE HAEMORRHAGE [None]
  - LETHARGY [None]
  - MALAISE [None]
  - NAUSEA [None]
  - WEIGHT DECREASED [None]
